FAERS Safety Report 7587657-1 (Version None)
Quarter: 2011Q3

REPORT INFORMATION
  Report Type: 
  Country: None (occurrence: None)
  Receive Date: 20110704
  Receipt Date: 20110628
  Transmission Date: 20111222
  Serious: Yes (Death)
  Sender: FDA-Public Use
  Company Number: PHHY2011CA45508

PATIENT
  Sex: Female

DRUGS (15)
  1. COLACE [Concomitant]
  2. ELAVIL [Concomitant]
     Dosage: 20 MG, DAILY
  3. FERROUS SULFATE TAB [Concomitant]
     Dosage: 300 MG, DAILY
  4. VENTOLIN HFA [Concomitant]
     Dosage: QID
  5. CLOZAPINE [Suspect]
     Indication: MAJOR DEPRESSION
     Dosage: 25 MG, UNK
     Route: 048
  6. DILANTIN [Concomitant]
     Dosage: 200 MG, BID
     Route: 048
  7. COMTAN [Concomitant]
     Dosage: 200 MG, 5 TIMES DAILY
  8. CLOZAPINE [Suspect]
     Indication: SCHIZOPHRENIA
     Dates: start: 20040402, end: 20100525
  9. STATEC [Concomitant]
     Dosage: 5 MG, UNK
     Route: 048
  10. SENOKOT [Concomitant]
     Dosage: 175 MG, DAILY
  11. SINEMET CR [Concomitant]
     Dosage: 1 TABLET 5 TIMES ^PER DAY^
  12. AMANTADINE HCL [Concomitant]
     Dosage: 100 MG, DAILY
  13. PERCOCET [Concomitant]
     Dosage: 50 MG, DAILY
  14. FLOVENT [Concomitant]
     Dosage: 500 MG, BID
  15. TYLENOL-500 [Concomitant]
     Dosage: 1 G, PRN (Q 10 PRN)

REACTIONS (2)
  - CONVULSION [None]
  - MUSCLE SPASMS [None]
